FAERS Safety Report 18098378 (Version 2)
Quarter: 2020Q3

REPORT INFORMATION
  Report Type: Spontaneous
  Country: US (occurrence: US)
  Receive Date: 20200731
  Receipt Date: 20200804
  Transmission Date: 20201103
  Serious: No
  Sender: FDA-Public Use
  Company Number: US-PFIZER INC-2020289569

PATIENT
  Age: 52 Year
  Sex: Female
  Weight: 48.99 kg

DRUGS (1)
  1. DUAVEE [Suspect]
     Active Substance: BAZEDOXIFENE ACETATE\ESTROGENS, CONJUGATED
     Indication: HOT FLUSH
     Dosage: 1 DF, 1X/DAY(1 TABLET BY MOUTH ONCE A DAY)
     Route: 048

REACTIONS (1)
  - Dysmenorrhoea [Unknown]
